FAERS Safety Report 9151498 (Version 2)
Quarter: 2013Q1

REPORT INFORMATION
  Report Type: Report from Study
  Country: DE (occurrence: DE)
  Receive Date: 20130308
  Receipt Date: 20130315
  Transmission Date: 20140127
  Serious: Yes (Other)
  Sender: FDA-Public Use
  Company Number: DE-ROCHE-1199182

PATIENT
  Age: 77 Year
  Sex: Female

DRUGS (4)
  1. RANIBIZUMAB [Suspect]
     Indication: AGE-RELATED MACULAR DEGENERATION
     Route: 050
     Dates: start: 20120927
  2. RANIBIZUMAB [Suspect]
     Route: 050
     Dates: start: 20121025
  3. RANIBIZUMAB [Suspect]
     Route: 050
     Dates: start: 20121122
  4. LUTEIN PLUS [Concomitant]
     Route: 048
     Dates: start: 20090910

REACTIONS (1)
  - Macular scar [Not Recovered/Not Resolved]
